FAERS Safety Report 6287798-5 (Version None)
Quarter: 2009Q3

REPORT INFORMATION
  Report Type: 
  Country: None (occurrence: None)
  Receive Date: 20090729
  Receipt Date: 20090720
  Transmission Date: 20100115
  Serious: Yes (Hospitalization)
  Sender: FDA-Public Use
  Company Number: US-BIOGENIDEC-2009BI017826

PATIENT
  Age: 65 Year
  Sex: Female

DRUGS (7)
  1. TYSABRI [Suspect]
     Indication: MULTIPLE SCLEROSIS
     Route: 042
     Dates: start: 20080229
  2. AVONEX [Concomitant]
     Indication: MULTIPLE SCLEROSIS
     Route: 030
     Dates: start: 20030717
  3. BACLOFEN [Concomitant]
     Indication: MULTIPLE SCLEROSIS
  4. MACROBID [Concomitant]
     Indication: PROPHYLAXIS URINARY TRACT INFECTION
  5. OXYBUTYNIN CHLORIDE [Concomitant]
     Indication: AUTOMATIC BLADDER
  6. PAXIL [Concomitant]
     Indication: DEPRESSION
  7. AMBIEN [Concomitant]
     Indication: INSOMNIA

REACTIONS (5)
  - ANAEMIA POSTOPERATIVE [None]
  - DYSPHAGIA [None]
  - FALL [None]
  - FEMUR FRACTURE [None]
  - OSTEOPOROSIS [None]
